FAERS Safety Report 5485924-9 (Version None)
Quarter: 2007Q4

REPORT INFORMATION
  Report Type: 
  Country: None (occurrence: None)
  Receive Date: 20071015
  Receipt Date: 20071001
  Transmission Date: 20080405
  Serious: Yes (Death)
  Sender: FDA-Public Use
  Company Number: US-SHR-US-2007-038578

PATIENT

DRUGS (2)
  1. REFLUDAN [Suspect]
     Indication: HEPARIN-INDUCED THROMBOCYTOPENIA
     Route: 042
  2. ARGATROBAN [Concomitant]
     Indication: HEPARIN-INDUCED THROMBOCYTOPENIA
     Route: 050

REACTIONS (1)
  - RENAL IMPAIRMENT [None]
